FAERS Safety Report 21779884 (Version 1)
Quarter: 2022Q4

REPORT INFORMATION
  Report Type: Spontaneous
  Country: GR (occurrence: GR)
  Receive Date: 20221226
  Receipt Date: 20221226
  Transmission Date: 20230113
  Serious: Yes (Other)
  Sender: FDA-Public Use
  Company Number: GR-PFIZER INC-202201370733

PATIENT
  Sex: Female

DRUGS (6)
  1. PAXLOVID [Suspect]
     Active Substance: NIRMATRELVIR\RITONAVIR
     Indication: COVID-19 treatment
     Dosage: 3 DF (THREE PILLS FROM THE BLUE SIDE)
     Dates: start: 20221212
  2. PRADAXA [Concomitant]
     Active Substance: DABIGATRAN ETEXILATE MESYLATE
     Dosage: UNK
  3. PRADAXA [Concomitant]
     Active Substance: DABIGATRAN ETEXILATE MESYLATE
     Dosage: 1 DF, 1X/DAY (DAY FOR 3 DAYS,)
  4. SOTALOL [Concomitant]
     Active Substance: SOTALOL
     Indication: Blood pressure abnormal
     Dosage: UNK, 2X/DAY
  5. TRIACOR [Concomitant]
     Indication: Blood pressure abnormal
     Dosage: UNK, 2X/DAY
  6. PANTOPRAZOLE SODIUM [Concomitant]
     Active Substance: PANTOPRAZOLE SODIUM
     Indication: Gastric disorder
     Dosage: UNK

REACTIONS (1)
  - Foreign body in throat [Unknown]
